FAERS Safety Report 19430936 (Version 1)
Quarter: 2021Q2

REPORT INFORMATION
  Report Type: Spontaneous
  Country: US (occurrence: US)
  Receive Date: 20210618
  Receipt Date: 20210618
  Transmission Date: 20210717
  Serious: No
  Sender: FDA-Public Use
  Company Number: US-ROCHE-2699533

PATIENT
  Sex: Female

DRUGS (16)
  1. ILEVRO [Concomitant]
     Active Substance: NEPAFENAC
  2. JANUMET [Concomitant]
     Active Substance: METFORMIN HYDROCHLORIDE\SITAGLIPTIN PHOSPHATE
  3. METHYLPREDNISOLONE. [Concomitant]
     Active Substance: METHYLPREDNISOLONE
  4. CARISOPRODOL. [Concomitant]
     Active Substance: CARISOPRODOL
  5. VOLTAREN [Concomitant]
     Active Substance: DICLOFENAC SODIUM
  6. ACTEMRA [Suspect]
     Active Substance: TOCILIZUMAB
     Indication: C-REACTIVE PROTEIN INCREASED
     Dosage: INJECT 162MG SUBCUTANEOUSLY EVERY WEEK AS DIRECTED
     Route: 058
  7. ABILIFY [Concomitant]
     Active Substance: ARIPIPRAZOLE
  8. ACTEMRA [Suspect]
     Active Substance: TOCILIZUMAB
  9. FLUOXETINE HYDROCHLORIDE. [Concomitant]
     Active Substance: FLUOXETINE HYDROCHLORIDE
  10. OLMESARTAN [Concomitant]
     Active Substance: OLMESARTAN
  11. NORTRIPTYLINE [Concomitant]
     Active Substance: NORTRIPTYLINE
  12. PANTOPRAZOLE [Concomitant]
     Active Substance: PANTOPRAZOLE
  13. ARIPIPRAZOLE. [Concomitant]
     Active Substance: ARIPIPRAZOLE
  14. FLUOXETINE HYDROCHLORIDE. [Concomitant]
     Active Substance: FLUOXETINE HYDROCHLORIDE
  15. ACTEMRA [Suspect]
     Active Substance: TOCILIZUMAB
  16. HYDROCODONE [Concomitant]
     Active Substance: HYDROCODONE

REACTIONS (3)
  - Off label use [Unknown]
  - Intentional product use issue [Unknown]
  - No adverse event [Unknown]
